FAERS Safety Report 8133001-0 (Version None)
Quarter: 2012Q1

REPORT INFORMATION
  Report Type: 
  Country: None (occurrence: None)
  Receive Date: 20120213
  Receipt Date: 20120206
  Transmission Date: 20120608
  Serious: Yes (Death, Hospitalization, Other)
  Sender: FDA-Public Use
  Company Number: US-TEVA-321582USA

PATIENT
  Age: 14 Year
  Sex: Male

DRUGS (2)
  1. PREDNISONE TAB [Suspect]
     Indication: ACUTE LYMPHOCYTIC LEUKAEMIA
     Route: 065
  2. METHOTREXATE [Suspect]
     Indication: ACUTE LYMPHOCYTIC LEUKAEMIA
     Dosage: 100 MG/M2 (FIRST DOSE)
     Route: 065

REACTIONS (22)
  - HEPATIC FAILURE [None]
  - BACTERAEMIA [None]
  - NEUTROPENIC COLITIS [None]
  - DRUG INTOLERANCE [None]
  - HEPATIC CIRRHOSIS [None]
  - HEPATORENAL SYNDROME [None]
  - COAGULOPATHY [None]
  - SEPSIS [None]
  - PNEUMONIA [None]
  - ENCEPHALOPATHY [None]
  - CANDIDA PNEUMONIA [None]
  - HEREDITARY HAEMOCHROMATOSIS [None]
  - RESPIRATORY FAILURE [None]
  - ASPERGILLOSIS [None]
  - PNEUMONIA BACTERIAL [None]
  - ACUTE LYMPHOCYTIC LEUKAEMIA (IN REMISSION) [None]
  - VENTRICULAR DYSFUNCTION [None]
  - IRON OVERLOAD [None]
  - FUNGAEMIA [None]
  - ATRIAL FIBRILLATION [None]
  - RENAL FAILURE [None]
  - BONE MARROW FAILURE [None]
